FAERS Safety Report 21122421 (Version 1)
Quarter: 2022Q3

REPORT INFORMATION
  Report Type: Report from Study
  Country: AR (occurrence: AR)
  Receive Date: 20220723
  Receipt Date: 20220723
  Transmission Date: 20221027
  Serious: Yes (Hospitalization)
  Sender: FDA-Public Use
  Company Number: AR-NOVARTISPH-NVSC2022AR165016

PATIENT
  Sex: Male

DRUGS (2)
  1. VILDAGLIPTIN [Suspect]
     Active Substance: VILDAGLIPTIN
     Indication: Diabetes mellitus
     Dosage: UNK
     Route: 065
  2. DIOVAN [Suspect]
     Active Substance: VALSARTAN
     Indication: Blood pressure increased
     Dosage: 2 DOSAGE FORM OF 80 MG, QD, STARTED APPROXIMATELY 1 MONTH AGO
     Route: 065

REACTIONS (1)
  - Feeling abnormal [Recovered/Resolved]
